FAERS Safety Report 11451090 (Version 1)
Quarter: 2015Q3

REPORT INFORMATION
  Report Type: Spontaneous
  Country: US (occurrence: None)
  Receive Date: 20150902
  Receipt Date: 20150902
  Transmission Date: 20151125
  Serious: Yes (Life-Threatening, Disabling)
  Sender: FDA-Public Use
  Company Number: None

PATIENT
  Age: 76 Year
  Sex: Female

DRUGS (2)
  1. SCHWEDENBITTER A [Concomitant]
  2. INVEGA [Suspect]
     Active Substance: PALIPERIDONE
     Indication: ABNORMAL BEHAVIOUR
     Dosage: BY MOUTH
     Dates: start: 20140721

REACTIONS (13)
  - Abdominal pain [None]
  - Muscle spasms [None]
  - Tremor [None]
  - Weight increased [None]
  - Dysphagia [None]
  - Dizziness [None]
  - Pyrexia [None]
  - Somnolence [None]
  - Drooling [None]
  - Tardive dyskinesia [None]
  - Oropharyngeal pain [None]
  - Heart rate irregular [None]
  - Tooth disorder [None]

NARRATIVE: CASE EVENT DATE: 20150716
